FAERS Safety Report 8076582-8 (Version None)
Quarter: 2012Q1

REPORT INFORMATION
  Report Type: 
  Country: None (occurrence: None)
  Receive Date: 20120127
  Receipt Date: 20111206
  Transmission Date: 20120608
  Serious: Yes (Other)
  Sender: FDA-Public Use
  Company Number: CA-JNJFOC-20120109268

PATIENT
  Sex: Female
  Weight: 53 kg

DRUGS (3)
  1. BENADRYL [Concomitant]
     Indication: PREMEDICATION
     Route: 042
  2. REMICADE [Suspect]
     Indication: COLITIS ULCERATIVE
     Dosage: THIRD LOADING DOSE
     Route: 042
     Dates: start: 20111206
  3. REMICADE [Suspect]
     Dosage: CURRENTLY IN LOADING THEN ONCE IN 8 WEEKS
     Route: 042
     Dates: start: 20111101

REACTIONS (2)
  - BLOOD PRESSURE DECREASED [None]
  - HEART RATE IRREGULAR [None]
